FAERS Safety Report 6032505-4 (Version None)
Quarter: 2009Q1

REPORT INFORMATION
  Report Type: 
  Country: None (occurrence: None)
  Receive Date: 20090109
  Receipt Date: 20081008
  Transmission Date: 20090719
  Serious: No
  Sender: FDA-Public Use
  Company Number: A0752081A

PATIENT
  Sex: Female

DRUGS (2)
  1. TYKERB [Suspect]
     Indication: DRUG USE FOR UNKNOWN INDICATION
     Dosage: 5TAB PER DAY
     Route: 048
     Dates: start: 20080927
  2. RADIATION THERAPY [Suspect]

REACTIONS (4)
  - DIARRHOEA [None]
  - DRY SKIN [None]
  - NAUSEA [None]
  - RASH [None]
